FAERS Safety Report 5395083-9 (Version None)
Quarter: 2007Q3

REPORT INFORMATION
  Report Type: 
  Country: None (occurrence: None)
  Receive Date: 20070724
  Receipt Date: 20070713
  Transmission Date: 20080115
  Serious: Yes (Other)
  Sender: FDA-Public Use
  Company Number: FI-JNJFOC-20070703278

PATIENT
  Age: 17 Year
  Sex: Female

DRUGS (3)
  1. REMICADE [Suspect]
     Indication: JUVENILE ARTHRITIS
     Route: 042
  2. ARAVA [Concomitant]
     Indication: JUVENILE ARTHRITIS
     Route: 048
  3. CALCIUM CHEWABLE [Concomitant]
     Indication: OSTEOPOROSIS PROPHYLAXIS
     Route: 048

REACTIONS (5)
  - ECZEMA [None]
  - HYPOCOMPLEMENTAEMIA [None]
  - PETECHIAE [None]
  - PLATELET COUNT DECREASED [None]
  - PURPURA [None]
